FAERS Safety Report 21906103 (Version 1)
Quarter: 2023Q1

REPORT INFORMATION
  Report Type: Spontaneous
  Country: FI (occurrence: FI)
  Receive Date: 20230124
  Receipt Date: 20230124
  Transmission Date: 20230418
  Serious: Yes (Life-Threatening)
  Sender: FDA-Public Use
  Company Number: None

PATIENT
  Age: 38 Year
  Sex: Female

DRUGS (6)
  1. MONTELUKAST [Suspect]
     Active Substance: MONTELUKAST SODIUM
     Indication: Asthma
     Dosage: 20 MG, DAILY
     Dates: start: 20170315, end: 20221006
  2. DESLORATADINE [Concomitant]
     Active Substance: DESLORATADINE
     Indication: Hypersensitivity
     Dates: start: 2017
  3. SYMBICORT [Concomitant]
     Active Substance: BUDESONIDE\FORMOTEROL FUMARATE DIHYDRATE
     Indication: Asthma
     Dosage: 4,DF,DAILY
     Dates: start: 2017
  4. PREDNISOLONE [Concomitant]
     Active Substance: PREDNISOLONE
     Indication: Asthma
     Dosage: 7.5,MG,DAILY
     Dates: start: 2017
  5. DYMISTA [Concomitant]
     Active Substance: AZELASTINE HYDROCHLORIDE\FLUTICASONE PROPIONATE
     Indication: Nasal congestion
     Dosage: 4,DF,DAILY
     Dates: start: 2017
  6. ALVESCO [Concomitant]
     Active Substance: CICLESONIDE
     Indication: Asthma
     Dosage: 640 MCG, DAILY
     Dates: start: 2017

REACTIONS (12)
  - Suicidal ideation [Recovering/Resolving]
  - Haemorrhage [Recovering/Resolving]
  - Spontaneous haematoma [Recovering/Resolving]
  - Gait disturbance [Recovering/Resolving]
  - Asthma [Recovering/Resolving]
  - Infection [Recovering/Resolving]
  - Vein rupture [Recovering/Resolving]
  - Anxiety [Recovering/Resolving]
  - Fatigue [Recovering/Resolving]
  - Depression [Recovering/Resolving]
  - Impaired healing [Recovering/Resolving]
  - Myalgia [Recovering/Resolving]

NARRATIVE: CASE EVENT DATE: 20200401
